FAERS Safety Report 5618976-3 (Version None)
Quarter: 2008Q1

REPORT INFORMATION
  Report Type: 
  Country: None (occurrence: None)
  Receive Date: 20080207
  Receipt Date: 20080128
  Transmission Date: 20080703
  Serious: Yes (Other)
  Sender: FDA-Public Use
  Company Number: US-PFIZER INC-2007100919

PATIENT
  Sex: Male
  Weight: 56.7 kg

DRUGS (5)
  1. DILANTIN [Suspect]
     Indication: CONVULSION
  2. PHENYTOIN [Suspect]
  3. OMEPRAZOLE [Concomitant]
  4. ARICEPT [Concomitant]
  5. COUMADIN [Concomitant]

REACTIONS (4)
  - ANTICONVULSANT DRUG LEVEL DECREASED [None]
  - CARDIAC PACEMAKER INSERTION [None]
  - CONVULSION [None]
  - WEIGHT DECREASED [None]
